FAERS Safety Report 6633135-3 (Version None)
Quarter: 2010Q1

REPORT INFORMATION
  Report Type: 
  Country: None (occurrence: None)
  Receive Date: 20100312
  Receipt Date: 20100302
  Transmission Date: 20100710
  Serious: Yes (Other)
  Sender: FDA-Public Use
  Company Number: PHHY2010AU12419

PATIENT
  Sex: Female

DRUGS (5)
  1. ZOMETA [Suspect]
     Dosage: UNK
     Dates: start: 20100224
  2. KARVEZIDE [Concomitant]
  3. LIPITOR [Concomitant]
  4. TAMOXIFEN CITRATE [Concomitant]
  5. VITAMINS WITH MINERALS [Concomitant]

REACTIONS (4)
  - DEHYDRATION [None]
  - FEELING ABNORMAL [None]
  - HYPERHIDROSIS [None]
  - INFLUENZA LIKE ILLNESS [None]
